FAERS Safety Report 7880150 (Version 4)
Quarter: 2013Q3

REPORT INFORMATION
  Report Type: Spontaneous
  Country: US (occurrence: US)
  Receive Date: 20110331
  Receipt Date: 20130808
  Transmission Date: 20140515
  Serious: Yes (Other)
  Sender: FDA-Public Use
  Company Number: US-JNJFOC-20110304728

PATIENT
  Age: 51 Year
  Sex: Female

DRUGS (1)
  1. LEVAQUIN [Suspect]
     Indication: PRODUCT USED FOR UNKNOWN INDICATION
     Route: 048
     Dates: start: 20070101, end: 20091229

REACTIONS (4)
  - Rotator cuff syndrome [Recovering/Resolving]
  - Rotator cuff syndrome [Unknown]
  - Tendon disorder [Unknown]
  - Musculoskeletal pain [Unknown]
